FAERS Safety Report 6510688-7 (Version None)
Quarter: 2009Q4

REPORT INFORMATION
  Report Type: 
  Country: None (occurrence: None)
  Receive Date: 20091222
  Receipt Date: 20091019
  Transmission Date: 20100525
  Serious: No
  Sender: FDA-Public Use
  Company Number: US-ASTRAZENECA-2009SE21051

PATIENT
  Sex: Female
  Weight: 72.6 kg

DRUGS (10)
  1. CRESTOR [Suspect]
     Route: 048
     Dates: start: 20090901
  2. ZYRTEC [Concomitant]
  3. ADVAIR DISKUS 100/50 [Concomitant]
  4. PREMARIN [Concomitant]
     Dosage: 0.0625  DAILY
  5. TEKTURNA [Concomitant]
     Indication: BLOOD PRESSURE
  6. DILTIAZEM [Concomitant]
  7. SUPPLEMENTS [Concomitant]
  8. RED YEAST RICE [Concomitant]
  9. EYE DROPS [Concomitant]
  10. ASPIRIN [Concomitant]

REACTIONS (3)
  - POLLAKIURIA [None]
  - RASH PRURITIC [None]
  - WEIGHT INCREASED [None]
